FAERS Safety Report 15676672 (Version 3)
Quarter: 2019Q2

REPORT INFORMATION
  Report Type: Spontaneous
  Country: US (occurrence: US)
  Receive Date: 20181130
  Receipt Date: 20190515
  Transmission Date: 20190711
  Serious: Yes (Other)
  Sender: FDA-Public Use
  Company Number: US-SA-2018SA324999

PATIENT
  Age: 55 Year
  Sex: Female

DRUGS (5)
  1. CYTOXAN [Concomitant]
     Active Substance: CYCLOPHOSPHAMIDE
  2. ADRIAMYCIN [Concomitant]
     Active Substance: DOXORUBICIN HYDROCHLORIDE
  3. TAXOTERE [Suspect]
     Active Substance: DOCETAXEL
     Indication: BREAST CANCER
     Dosage: UNK UNK, UNK
     Route: 042
     Dates: start: 200509, end: 200509
  4. TAXOTERE [Suspect]
     Active Substance: DOCETAXEL
     Dosage: UNK UNK, UNK
     Route: 042
     Dates: start: 200510, end: 200510
  5. NEULASTA [Concomitant]
     Active Substance: PEGFILGRASTIM
     Dosage: UNK

REACTIONS (1)
  - Alopecia [Not Recovered/Not Resolved]

NARRATIVE: CASE EVENT DATE: 200604
